FAERS Safety Report 13971978 (Version 1)
Quarter: 2017Q3

REPORT INFORMATION
  Report Type: Spontaneous
  Country: US (occurrence: US)
  Receive Date: 20170914
  Receipt Date: 20170914
  Transmission Date: 20171128
  Serious: No
  Sender: FDA-Public Use
  Company Number: US-INTERPRAG-PM-OCA2017-00685

PATIENT

DRUGS (9)
  1. MULTIVITE                          /00067501/ [Concomitant]
  2. HUMIRA [Concomitant]
     Active Substance: ADALIMUMAB
  3. OCALIVA [Suspect]
     Active Substance: OBETICHOLIC ACID
     Indication: BILIARY CIRRHOSIS
     Dosage: 5 MG, QD
     Route: 048
     Dates: start: 20170620
  4. PROGRAF [Concomitant]
     Active Substance: TACROLIMUS\TACROLIMUS ANHYDROUS
  5. ALENDRONATE [Concomitant]
     Active Substance: ALENDRONATE SODIUM
  6. PROTONIX                           /00661201/ [Concomitant]
     Active Substance: OMEPRAZOLE
  7. URSODIOL. [Concomitant]
     Active Substance: URSODIOL
  8. BARACLUDE [Concomitant]
     Active Substance: ENTECAVIR
  9. UCERIS [Concomitant]
     Active Substance: BUDESONIDE

REACTIONS (1)
  - Diarrhoea [Unknown]

NARRATIVE: CASE EVENT DATE: 201707
